FAERS Safety Report 10862135 (Version 1)
Quarter: 2015Q1

REPORT INFORMATION
  Report Type: Spontaneous
  Country: US (occurrence: None)
  Receive Date: 20150219
  Receipt Date: 20150219
  Transmission Date: 20150721
  Serious: Yes (Other)
  Sender: FDA-Public Use
  Company Number: None

PATIENT
  Age: 83 Year
  Sex: Male
  Weight: 84.82 kg

DRUGS (1)
  1. ZYTIGA [Suspect]
     Active Substance: ABIRATERONE ACETATE
     Indication: PROSTATE CANCER
     Dosage: STRENGTH: 250MG, DOSE FORM: ORAL, FREQUENCY: 4 PO DAILY, ROUTE: ORAL 047
     Route: 048
     Dates: start: 20150122

REACTIONS (4)
  - Pain [None]
  - Nausea [None]
  - Depression [None]
  - Vomiting [None]

NARRATIVE: CASE EVENT DATE: 20150203
